FAERS Safety Report 21419830 (Version 1)
Quarter: 2022Q4

REPORT INFORMATION
  Report Type: Spontaneous
  Country: US (occurrence: None)
  Receive Date: 20221006
  Receipt Date: 20221006
  Transmission Date: 20230113
  Serious: Yes (Hospitalization)
  Sender: FDA-Public Use
  Company Number: None

PATIENT
  Sex: Female

DRUGS (6)
  1. BUDESONIDE [Suspect]
     Active Substance: BUDESONIDE
     Indication: Pulmonary arterial hypertension
     Dosage: OTHER QUANTITY : 0.5MG/2ML;?FREQUENCY : TWICE A DAY;?
     Route: 055
     Dates: start: 20220408
  2. PENTASA [Concomitant]
     Active Substance: MESALAMINE
  3. MOMETASONE [Concomitant]
     Active Substance: MOMETASONE
  4. MONTELUKAST [Concomitant]
     Active Substance: MONTELUKAST SODIUM
  5. ACETAMINOPHEN [Concomitant]
     Active Substance: ACETAMINOPHEN
  6. SODIUM CHLORIDE [Concomitant]
     Active Substance: SODIUM CHLORIDE

REACTIONS (1)
  - Pneumothorax [None]
